FAERS Safety Report 6240501-7 (Version None)
Quarter: 2009Q2

REPORT INFORMATION
  Report Type: 
  Country: None (occurrence: None)
  Receive Date: 20090623
  Receipt Date: 20090401
  Transmission Date: 20091009
  Serious: No
  Sender: FDA-Public Use
  Company Number: US-ASTRAZENECA-2009UW08186

PATIENT
  Sex: Female

DRUGS (1)
  1. PULMICORT-100 [Suspect]
     Route: 055

REACTIONS (3)
  - ANOSMIA [None]
  - ILL-DEFINED DISORDER [None]
  - NASAL CONGESTION [None]
